FAERS Safety Report 12572751 (Version 2)
Quarter: 2016Q3

REPORT INFORMATION
  Report Type: Spontaneous
  Country: JP (occurrence: JP)
  Receive Date: 20160720
  Receipt Date: 20160728
  Transmission Date: 20161109
  Serious: Yes (Hospitalization)
  Sender: FDA-Public Use
  Company Number: JP-ORION CORPORATION ORION PHARMA-ENT 2016-0137

PATIENT
  Age: 45 Year
  Sex: Female

DRUGS (7)
  1. LEVODOPA [Concomitant]
     Active Substance: LEVODOPA
     Dosage: 450 MG (1.5-1.5-1.5)
     Route: 065
  2. LEVODOPA [Concomitant]
     Active Substance: LEVODOPA
     Dosage: 400 MG (0.5-1.5-1-1)
     Route: 065
  3. PRAMIPEXOLE. [Concomitant]
     Active Substance: PRAMIPEXOLE
     Dosage: 2 MG (2-1-1)
     Route: 065
  4. COMTAN [Suspect]
     Active Substance: ENTACAPONE
     Indication: DRUG EFFECT DECREASED
     Dosage: 700 MG (1-2-2-2)
     Route: 048
  5. SELEGILINE [Suspect]
     Active Substance: SELEGILINE
     Dosage: 7.5 MG (2-1-0)
     Route: 065
  6. COMTAN [Suspect]
     Active Substance: ENTACAPONE
     Indication: PARKINSON^S DISEASE
  7. APOMORPHINE [Concomitant]
     Active Substance: APOMORPHINE
     Route: 065

REACTIONS (1)
  - Dyskinesia [Recovered/Resolved]
